FAERS Safety Report 11616707 (Version 1)
Quarter: 2015Q4

REPORT INFORMATION
  Report Type: Spontaneous
  Country: US (occurrence: US)
  Receive Date: 20151009
  Receipt Date: 20151009
  Transmission Date: 20160304
  Serious: No
  Sender: FDA-Public Use
  Company Number: US-TEVA-598718USA

PATIENT
  Sex: Male

DRUGS (1)
  1. QNASL [Suspect]
     Active Substance: BECLOMETHASONE DIPROPIONATE
     Route: 065

REACTIONS (8)
  - Pituitary-dependent Cushing^s syndrome [Unknown]
  - Overweight [Unknown]
  - Sleep apnoea syndrome [Unknown]
  - Glycosylated haemoglobin increased [Unknown]
  - Glucose tolerance impaired [Unknown]
  - Neck mass [Unknown]
  - Weight increased [Unknown]
  - Fatigue [Unknown]
